FAERS Safety Report 20506268 (Version 1)
Quarter: 2022Q1

REPORT INFORMATION
  Report Type: Spontaneous
  Country: US (occurrence: None)
  Receive Date: 20220222
  Receipt Date: 20220222
  Transmission Date: 20220423
  Serious: No
  Sender: FDA-Public Use
  Company Number: None

PATIENT
  Age: 48 Year
  Sex: Female

DRUGS (2)
  1. TIXAGEVIMAB [Suspect]
     Active Substance: TIXAGEVIMAB
  2. CILGAVIMAB [Suspect]
     Active Substance: CILGAVIMAB

REACTIONS (7)
  - Tachycardia [None]
  - Throat irritation [None]
  - Dizziness [None]
  - Dizziness [None]
  - Paraesthesia [None]
  - Chest discomfort [None]
  - Anaphylactic reaction [None]

NARRATIVE: CASE EVENT DATE: 20220213
